FAERS Safety Report 4370032-0 (Version None)
Quarter: 2004Q2

REPORT INFORMATION
  Report Type: 
  Country: None (occurrence: None)
  Receive Date: 20040526
  Receipt Date: 20031201
  Transmission Date: 20050107
  Serious: Yes (Hospitalization, Other)
  Sender: FDA-Public Use
  Company Number: USA031253661

PATIENT
  Age: 65 Year

DRUGS (1)
  1. ZYPREXA [Suspect]

REACTIONS (1)
  - LOSS OF CONSCIOUSNESS [None]
